FAERS Safety Report 9986100 (Version 1)
Quarter: 2014Q1

REPORT INFORMATION
  Report Type: Report from Study
  Country: US (occurrence: US)
  Receive Date: 20140307
  Receipt Date: 20140307
  Transmission Date: 20141002
  Serious: Yes (Other)
  Sender: FDA-Public Use
  Company Number: US-ABBVIE-14P-163-1207234-00

PATIENT
  Sex: Male

DRUGS (2)
  1. HUMIRA [Suspect]
     Indication: PSORIASIS
  2. TOPICAL STEROID CREAMS [Concomitant]
     Indication: RASH MACULAR

REACTIONS (8)
  - Tendon rupture [Recovering/Resolving]
  - Epicondylitis [Recovering/Resolving]
  - Arthralgia [Unknown]
  - Drug dose omission [Unknown]
  - Nausea [Unknown]
  - Nasopharyngitis [Unknown]
  - Psoriasis [Unknown]
  - Psoriasis [Unknown]
